FAERS Safety Report 4583034-6 (Version None)
Quarter: 2005Q1

REPORT INFORMATION
  Report Type: 
  Country: None (occurrence: None)
  Receive Date: 20050125
  Receipt Date: 20041115
  Transmission Date: 20050727
  Serious: No
  Sender: FDA-Public Use
  Company Number: US_0411108330

PATIENT
  Age: 84 Year
  Sex: Female

DRUGS (8)
  1. FORTEO [Suspect]
     Indication: OSTEOPOROSIS
     Dates: start: 20040915
  2. EVISTA [Suspect]
     Dates: start: 20020101, end: 20040915
  3. SYNTHROID [Concomitant]
  4. NEXIUM [Concomitant]
  5. ZANTAC [Concomitant]
  6. XANAX (ALPRAZOLAM DUM) [Concomitant]
  7. PRILOSEC (OMEPRAZOLE RATIOPHARM) [Concomitant]
  8. GAS RELIEF (DIMETICONE, ACTIVATED) [Concomitant]

REACTIONS (4)
  - ASTHENIA [None]
  - CHEST PAIN [None]
  - FATIGUE [None]
  - HEADACHE [None]
